FAERS Safety Report 15203543 (Version 5)
Quarter: 2018Q3

REPORT INFORMATION
  Report Type: Report from Study
  Country: DE (occurrence: DE)
  Receive Date: 20180726
  Receipt Date: 20180927
  Transmission Date: 20181010
  Serious: Yes (Hospitalization, Other)
  Sender: FDA-Public Use
  Company Number: DE-INCYTE CORPORATION-2016IN008279

PATIENT

DRUGS (18)
  1. ASPIRIN. [Concomitant]
     Active Substance: ASPIRIN
     Indication: GASTRIC ULCER
     Dosage: 100 MG, QD (1?0?0?0)
     Route: 048
     Dates: start: 20130114
  2. FOSTER                             /00500401/ [Concomitant]
     Active Substance: PIROXICAM
     Indication: LUNG DISORDER
     Dosage: 1 DF, BID (1?0?1?0)
     Route: 048
     Dates: start: 20140120
  3. AMLODIPIN [Concomitant]
     Active Substance: AMLODIPINE BESYLATE
     Indication: HYPERTENSION
     Dosage: 5 MG, UNK
     Route: 048
     Dates: start: 20130114
  4. JAKAVI [Suspect]
     Active Substance: RUXOLITINIB
     Indication: POLYCYTHAEMIA VERA
     Dosage: 20 MG (15+5 MG), QD
     Route: 048
     Dates: start: 20161128, end: 20170109
  5. JAKAVI [Suspect]
     Active Substance: RUXOLITINIB
     Dosage: 5 MG, BID
     Route: 048
     Dates: start: 20180710
  6. GABAPENTIN. [Concomitant]
     Active Substance: GABAPENTIN
     Indication: HERPES ZOSTER
     Dosage: 1 DF, QID (1?1?1?1)
     Route: 048
     Dates: start: 20160105
  7. MOVICOL                            /08437601/ [Concomitant]
     Indication: CONSTIPATION PROPHYLAXIS
     Dosage: UNK UNK, PRN (AS NEEDED)
     Route: 048
     Dates: start: 20180710
  8. METOPROLOL. [Concomitant]
     Active Substance: METOPROLOL
     Indication: HYPERTENSION
     Dosage: 50 MG, BID (1?0?0?1)
     Route: 048
     Dates: start: 20130114
  9. AMITRIPTYLINE [Concomitant]
     Active Substance: AMITRIPTYLINE
     Indication: HERPES ZOSTER
     Dosage: 1 DF, QD (0?0?0?1)
     Route: 048
     Dates: start: 20170610
  10. OMEPRAZOLE. [Concomitant]
     Active Substance: OMEPRAZOLE
     Indication: GASTRIC ULCER
     Dosage: 20 MG, QD (1?0?0?0)
     Route: 048
     Dates: start: 20130114
  11. RAMIPRIL. [Concomitant]
     Active Substance: RAMIPRIL
     Indication: HYPERTENSION
     Dosage: 5 MG, BID (1?0?1?0)
     Route: 048
     Dates: start: 20130114
  12. METFORMIN, METFORMIN HYDROCHLORIDE [Concomitant]
     Indication: DIABETES MELLITUS
     Dosage: 850 MG, QD (0?0?0?1)
     Route: 048
     Dates: start: 20130114
  13. PRAVASTATIN. [Concomitant]
     Active Substance: PRAVASTATIN
     Indication: GASTRIC ULCER
     Dosage: 20 MG, QD (0?0?0?1)
     Route: 048
     Dates: start: 20130114
  14. ACICLOVIR [Concomitant]
     Active Substance: ACYCLOVIR
     Indication: HERPES ZOSTER
     Dosage: 400 MG, QD (1?0?0?0)
     Route: 048
     Dates: start: 20180716
  15. JAKAVI [Suspect]
     Active Substance: RUXOLITINIB
     Dosage: 20 MG, QD (DAILY)
     Route: 048
     Dates: start: 20170208, end: 20180709
  16. PALEXIA [Concomitant]
     Active Substance: TAPENTADOL HYDROCHLORIDE
     Indication: HERPES ZOSTER
     Dosage: 1 DF (100 MG), TID (1?1?1?0)
     Route: 048
     Dates: start: 20171013, end: 20180709
  17. PALEXIA [Concomitant]
     Active Substance: TAPENTADOL HYDROCHLORIDE
     Dosage: 1 DF (50 MG), TID (1?1?1?0)
     Route: 048
     Dates: start: 20180710, end: 20180716
  18. HCT [Concomitant]
     Active Substance: HYDROCHLOROTHIAZIDE
     Indication: HYPERTENSION
     Dosage: 25 MG, QD (1?0?0)
     Route: 048
     Dates: start: 20180716

REACTIONS (8)
  - Urinary tract infection [Recovered/Resolved]
  - Anaemia [Recovered/Resolved]
  - Anaemia [Recovered/Resolved]
  - Pancytopenia [Not Recovered/Not Resolved]
  - Blood potassium increased [Recovered/Resolved]
  - Serum ferritin increased [Not Recovered/Not Resolved]
  - Anaemia [Not Recovered/Not Resolved]
  - Anaemia [Recovered/Resolved]

NARRATIVE: CASE EVENT DATE: 20161128
